FAERS Safety Report 12452958 (Version 2)
Quarter: 2016Q3

REPORT INFORMATION
  Report Type: Spontaneous
  Country: US (occurrence: US)
  Receive Date: 20160609
  Receipt Date: 20160708
  Transmission Date: 20161109
  Serious: No
  Sender: FDA-Public Use
  Company Number: US-PFIZER INC-2016265064

PATIENT
  Age: 53 Year
  Sex: Female

DRUGS (1)
  1. NEURONTIN [Suspect]
     Active Substance: GABAPENTIN
     Dosage: UNK
     Dates: start: 2011

REACTIONS (3)
  - Dizziness [Unknown]
  - Lethargy [Unknown]
  - Activities of daily living impaired [Unknown]
